FAERS Safety Report 4868242-9 (Version None)
Quarter: 2005Q4

REPORT INFORMATION
  Report Type: 
  Country: None (occurrence: None)
  Receive Date: 20051227
  Receipt Date: 20051213
  Transmission Date: 20060501
  Serious: Yes (Death)
  Sender: FDA-Public Use
  Company Number: FABR-11338

PATIENT
  Age: 44 Year
  Sex: Male
  Weight: 50 kg

DRUGS (3)
  1. FABRAZYME [Suspect]
     Indication: FABRY'S DISEASE
     Dosage: 50 MG Q2WKS IV
     Route: 042
     Dates: end: 20051202
  2. FABRAZYME [Suspect]
     Indication: FABRY'S DISEASE
     Dosage: 70 MG Q2WKS IV
     Route: 042
     Dates: start: 20030716
  3. FABRAZYME [Suspect]
     Indication: FABRY'S DISEASE
     Dosage: 170 MG Q2WKS IV
     Route: 042
     Dates: start: 20030625

REACTIONS (1)
  - PERITONITIS [None]
